FAERS Safety Report 10092588 (Version 1)
Quarter: 2014Q2

REPORT INFORMATION
  Report Type: Spontaneous
  Country: US (occurrence: US)
  Receive Date: 20140421
  Receipt Date: 20140421
  Transmission Date: 20141212
  Serious: No
  Sender: FDA-Public Use
  Company Number: US-SANOFI-AVENTIS-2013SA051446

PATIENT
  Age: 20 Year
  Sex: Female

DRUGS (3)
  1. ALLEGRA [Suspect]
     Indication: HYPERSENSITIVITY
     Route: 048
     Dates: start: 20130516, end: 20130517
  2. VITAMINS [Concomitant]
  3. FISH OIL [Concomitant]

REACTIONS (3)
  - Abdominal pain [Unknown]
  - Tremor [Unknown]
  - Dizziness [Unknown]
